FAERS Safety Report 8860433 (Version 3)
Quarter: 2013Q1

REPORT INFORMATION
  Report Type: Spontaneous
  Country: US (occurrence: US)
  Receive Date: 20121025
  Receipt Date: 20130306
  Transmission Date: 20140127
  Serious: Yes (Other)
  Sender: FDA-Public Use
  Company Number: PHEH2012US020394

PATIENT
  Age: 53 Year
  Sex: Female
  Weight: 64.5 kg

DRUGS (7)
  1. GILENYA [Suspect]
     Indication: RELAPSING-REMITTING MULTIPLE SCLEROSIS
     Dosage: 0.5 MG, QD
     Route: 048
     Dates: start: 201111
  2. AMLODIPINE [Concomitant]
     Indication: HYPERTENSION
     Dosage: 2.5 MG, DAILY
     Route: 048
  3. ATENOLOL [Concomitant]
     Indication: HYPERTENSION
     Dosage: 50 MG, DAILY
     Route: 048
  4. D VITAMIINI [Concomitant]
     Dosage: 50000 U, QW4
     Route: 048
  5. NOZID [Concomitant]
     Indication: PAIN
     Dosage: 1 DF, PRN
     Route: 048
  6. HYDROCODONE BITARTRATE AND ACETAMINOPHEN [Concomitant]
  7. BACTROBAN [Concomitant]

REACTIONS (9)
  - Nuclear magnetic resonance imaging abnormal [Unknown]
  - Metastatic malignant melanoma [Unknown]
  - Skin lesion [Unknown]
  - Biopsy skin abnormal [Unknown]
  - Biopsy lymph gland abnormal [Unknown]
  - Strabismus [Unknown]
  - Gait disturbance [Unknown]
  - Blood creatinine increased [Unknown]
  - Headache [Unknown]
